FAERS Safety Report 23595687 (Version 1)
Quarter: 2024Q1

REPORT INFORMATION
  Report Type: Spontaneous
  Country: US (occurrence: None)
  Receive Date: 20240304
  Receipt Date: 20240304
  Transmission Date: 20240410
  Serious: Yes (Life-Threatening)
  Sender: FDA-Public Use
  Company Number: None

PATIENT
  Age: 5 Year
  Sex: Male
  Weight: 17.1 kg

DRUGS (6)
  1. DELANDISTROGENE MOXEPARVOVEC [Suspect]
     Active Substance: DELANDISTROGENE MOXEPARVOVEC
     Indication: Duchenne muscular dystrophy
     Dosage: OTHER FREQUENCY : 1TIME;?
     Route: 042
     Dates: start: 20240229, end: 20240229
  2. PREDNISOLONE [Concomitant]
     Active Substance: PREDNISOLONE
     Dates: start: 20220520
  3. HYDROCORTISONE [Concomitant]
     Active Substance: HYDROCORTISONE
     Dates: start: 20230501
  4. FAMOTIDINE [Concomitant]
     Active Substance: FAMOTIDINE
     Dates: start: 20240227
  5. CHOLECALCIFEROL [Concomitant]
     Active Substance: CHOLECALCIFEROL
     Dates: start: 20230501
  6. MIRALAX [Concomitant]
     Active Substance: POLYETHYLENE GLYCOL 3350
     Dates: start: 20220808

REACTIONS (13)
  - Infusion related reaction [None]
  - Vomiting [None]
  - Tachycardia [None]
  - Crying [None]
  - Tachypnoea [None]
  - Erythema [None]
  - Oxygen saturation increased [None]
  - Lip erythema [None]
  - Lip swelling [None]
  - Dyspnoea [None]
  - Drooling [None]
  - Nasal flaring [None]
  - Use of accessory respiratory muscles [None]

NARRATIVE: CASE EVENT DATE: 20240229
